FAERS Safety Report 4915145-7 (Version None)
Quarter: 2006Q1

REPORT INFORMATION
  Report Type: 
  Country: None (occurrence: None)
  Receive Date: 20060215
  Receipt Date: 20060215
  Transmission Date: 20060701
  Serious: Yes (Other)
  Sender: FDA-Public Use
  Company Number: None

PATIENT
  Age: 38 Year
  Sex: Female
  Weight: 75.7507 kg

DRUGS (1)
  1. CYMBALTA [Suspect]
     Indication: NEURALGIA
     Dosage: 60MG  ONCE DAILY PO
     Route: 048
     Dates: start: 20051223, end: 20060207

REACTIONS (17)
  - ABNORMAL DREAMS [None]
  - ANGER [None]
  - DIARRHOEA [None]
  - DIZZINESS [None]
  - EMOTIONAL DISORDER [None]
  - FATIGUE [None]
  - FEELING ABNORMAL [None]
  - HEADACHE [None]
  - INSOMNIA [None]
  - IRRITABILITY [None]
  - LETHARGY [None]
  - MIGRAINE [None]
  - NAUSEA [None]
  - NEURALGIA [None]
  - PARAESTHESIA [None]
  - THINKING ABNORMAL [None]
  - TINNITUS [None]
